FAERS Safety Report 24091968 (Version 1)
Quarter: 2024Q3

REPORT INFORMATION
  Report Type: Spontaneous
  Country: US (occurrence: US)
  Receive Date: 20240715
  Receipt Date: 20240715
  Transmission Date: 20241017
  Serious: No
  Sender: PERRIGO
  Company Number: US-PERRIGO-24US001781

PATIENT
  Age: 60 Year
  Sex: Male
  Weight: 92.971 kg

DRUGS (1)
  1. MINOXIDIL [Suspect]
     Active Substance: MINOXIDIL
     Indication: Hair growth abnormal
     Dosage: 1 ML, QD OR BID
     Route: 061
     Dates: start: 202307, end: 20240201

REACTIONS (4)
  - Application site dryness [Recovering/Resolving]
  - Application site exfoliation [Recovering/Resolving]
  - Application site irritation [Recovering/Resolving]
  - Inappropriate schedule of product administration [Unknown]

NARRATIVE: CASE EVENT DATE: 20230701
